FAERS Safety Report 15201479 (Version 1)
Quarter: 2018Q3

REPORT INFORMATION
  Report Type: Spontaneous
  Country: JP (occurrence: JP)
  Receive Date: 20180726
  Receipt Date: 20180726
  Transmission Date: 20181010
  Serious: Yes (Other)
  Sender: FDA-Public Use
  Company Number: JP-SUN PHARMACEUTICAL INDUSTRIES LTD-2018RR-179513

PATIENT
  Age: 52 Year
  Sex: Female

DRUGS (12)
  1. CARBOPLATIN. [Suspect]
     Active Substance: CARBOPLATIN
     Indication: METASTASIS
     Dosage: UNK
     Route: 065
  2. PACLITAXEL. [Suspect]
     Active Substance: PACLITAXEL
     Indication: METASTASES TO LYMPH NODES
     Dosage: UNK
     Route: 065
     Dates: start: 201508
  3. CISPLATIN. [Suspect]
     Active Substance: CISPLATIN
     Indication: METASTASES TO LYMPH NODES
     Dosage: UNK
     Route: 065
     Dates: start: 201508
  4. CISPLATIN. [Suspect]
     Active Substance: CISPLATIN
     Dosage: 50 MG/M2, SIX CYCLES
     Route: 065
  5. ETOPOSIDE. [Suspect]
     Active Substance: ETOPOSIDE
     Indication: METASTASES TO LUNG
     Dosage: UNK
     Route: 065
     Dates: start: 2011
  6. PACLITAXEL. [Suspect]
     Active Substance: PACLITAXEL
     Dosage: 135 MG/M2, SIX CYCLES
     Route: 065
  7. IRINOTECAN [Suspect]
     Active Substance: IRINOTECAN
     Indication: METASTASES TO LUNG
     Dosage: UNK
     Route: 065
     Dates: start: 2011
  8. CISPLATIN. [Suspect]
     Active Substance: CISPLATIN
     Indication: DISEASE PROGRESSION
     Dosage: UNK
     Route: 065
  9. BEVACIZUMAB. [Suspect]
     Active Substance: BEVACIZUMAB
     Indication: DISEASE PROGRESSION
     Dosage: 15 MG/KG, SIX CYCLES
     Route: 065
  10. ETOPOSIDE. [Suspect]
     Active Substance: ETOPOSIDE
     Indication: DISEASE PROGRESSION
  11. IRINOTECAN [Suspect]
     Active Substance: IRINOTECAN
     Indication: METASTASES TO LYMPH NODES
     Dosage: UNK
     Route: 065
  12. PACLITAXEL. [Suspect]
     Active Substance: PACLITAXEL
     Indication: METASTASIS
     Dosage: UNK
     Route: 065
     Dates: start: 201211

REACTIONS (21)
  - Fistula [Unknown]
  - Leukopenia [Unknown]
  - Drug effect incomplete [Unknown]
  - Fatigue [Unknown]
  - Drug ineffective [Unknown]
  - Metastases to lymph nodes [Unknown]
  - Metastasis [Unknown]
  - Disease progression [Unknown]
  - Thrombocytopenia [Unknown]
  - Vomiting [Unknown]
  - Mucosal inflammation [Unknown]
  - Metastases to central nervous system [Unknown]
  - Nausea [Unknown]
  - Diarrhoea [Unknown]
  - Peripheral sensory neuropathy [Unknown]
  - Myalgia [Unknown]
  - Anaemia [Unknown]
  - Neutropenia [Unknown]
  - Hypertension [Unknown]
  - Proteinuria [Unknown]
  - Gastrointestinal perforation [Unknown]

NARRATIVE: CASE EVENT DATE: 201304
